FAERS Safety Report 19778262 (Version 4)
Quarter: 2022Q3

REPORT INFORMATION
  Report Type: Spontaneous
  Country: JP (occurrence: JP)
  Receive Date: 20210902
  Receipt Date: 20220714
  Transmission Date: 20221026
  Serious: No
  Sender: FDA-Public Use
  Company Number: JP-GSKNCCC-CASE-01292097_AE-48855

PATIENT

DRUGS (13)
  1. VALTREX [Suspect]
     Active Substance: VALACYCLOVIR HYDROCHLORIDE
     Indication: Herpes zoster
     Dosage: 500 MG
     Route: 048
  2. VALTREX [Suspect]
     Active Substance: VALACYCLOVIR HYDROCHLORIDE
     Indication: Pain
  3. AMENAMEVIR [Concomitant]
     Active Substance: AMENAMEVIR
     Indication: Pain
     Dosage: UNK
  4. MIYA-BM [Concomitant]
     Active Substance: CLOSTRIDIUM BUTYRICUM SPORES STRAIN M-55
     Dosage: 3 DF/DAY
  5. BAYASPIRIN TABLETS [Concomitant]
     Dosage: 100 MG/DAY
  6. GASTER [Concomitant]
     Active Substance: FAMOTIDINE
     Dosage: 10 MG/DAY
  7. CARVEDILOL [Concomitant]
     Active Substance: CARVEDILOL
     Dosage: 2.5 MG/DAY
  8. AMEZINIUM METILSULFATE [Concomitant]
     Active Substance: AMEZINIUM METILSULFATE
     Dosage: 10 MG/DAY
  9. KAYEXALATE DRYSYRUP [Concomitant]
     Dosage: 3 DF/DAY
  10. LASIX [Concomitant]
     Active Substance: FUROSEMIDE
     Dosage: 80 MG/DAY
  11. CALTAN OD [Concomitant]
     Dosage: 1000 MG/DAY
  12. FOSRENOL OD TABLET [Concomitant]
     Dosage: 1000 MG/DAY
  13. ALFAROL CAPSULE [Concomitant]
     Dosage: 0.25 ?G

REACTIONS (1)
  - Pain [Unknown]
